FAERS Safety Report 17661290 (Version 2)
Quarter: 2020Q2

REPORT INFORMATION
  Report Type: Report from Study
  Country: US (occurrence: US)
  Receive Date: 20200413
  Receipt Date: 20200421
  Transmission Date: 20200713
  Serious: Yes (Hospitalization)
  Sender: FDA-Public Use
  Company Number: US-SA-2020SA095124

PATIENT
  Age: 69 Year
  Sex: Female

DRUGS (8)
  1. ASCORBIC ACID. [Concomitant]
     Active Substance: ASCORBIC ACID
     Indication: CORONAVIRUS INFECTION
     Dosage: 1500 MG, Q6H
     Route: 042
     Dates: start: 20200326, end: 20200330
  2. AZITHROMYCIN ANHYDROUS. [Concomitant]
     Active Substance: AZITHROMYCIN ANHYDROUS
     Indication: CORONAVIRUS INFECTION
     Dosage: 250 MG, QD
     Route: 048
     Dates: start: 20200327, end: 20200328
  3. NOREPINEPHRINE. [Concomitant]
     Active Substance: NOREPINEPHRINE
     Indication: BLOOD PRESSURE ABNORMAL
     Dosage: 16 MG
     Route: 042
     Dates: start: 20200327
  4. ASPIRIN                            /00002701/ [Concomitant]
     Active Substance: ASPIRIN
     Dosage: 81 MG, QD
     Route: 048
     Dates: start: 20200326
  5. THIAMINE. [Concomitant]
     Active Substance: THIAMINE
     Indication: CORONAVIRUS INFECTION
     Dosage: 200 MG, INTERMITTENT
     Route: 042
     Dates: start: 20200326, end: 20200330
  6. SYNTHROID [Concomitant]
     Active Substance: LEVOTHYROXINE SODIUM
     Indication: HYPOTHYROIDISM
     Dosage: 50 MG, QD
     Route: 048
  7. SARILUMAB [Suspect]
     Active Substance: SARILUMAB
     Indication: CORONAVIRUS INFECTION
     Dosage: 400 MG, 1X
     Route: 042
     Dates: start: 20200328, end: 20200328
  8. HYDROXYCHLOROQUINE [Concomitant]
     Active Substance: HYDROXYCHLOROQUINE
     Indication: CORONAVIRUS INFECTION
     Dosage: 200 MG, TID
     Route: 048
     Dates: start: 20200327, end: 20200331

REACTIONS (2)
  - Liver function test abnormal [Recovered/Resolved]
  - Pneumonia [Unknown]

NARRATIVE: CASE EVENT DATE: 20200402
